FAERS Safety Report 24620875 (Version 2)
Quarter: 2024Q4

REPORT INFORMATION
  Report Type: Report from Study
  Country: JP (occurrence: JP)
  Receive Date: 20241114
  Receipt Date: 20241119
  Transmission Date: 20250115
  Serious: Yes (Other)
  Sender: ALEXION PHARMACEUTICALS
  Company Number: JP-ASTRAZENECA-240115408_032420_P_1

PATIENT
  Age: 70 Year

DRUGS (20)
  1. TEZEPELUMAB [Suspect]
     Active Substance: TEZEPELUMAB
     Indication: Asthma
     Dosage: UNK
  2. TEZEPELUMAB [Suspect]
     Active Substance: TEZEPELUMAB
     Dosage: UNK
  3. TEZEPELUMAB [Suspect]
     Active Substance: TEZEPELUMAB
     Dosage: UNK
  4. TEZEPELUMAB [Suspect]
     Active Substance: TEZEPELUMAB
     Dosage: UNK
  5. UNSPECIFIED INGREDIENT [Concomitant]
     Active Substance: UNSPECIFIED INGREDIENT
     Indication: Asthma
     Dosage: DOSE UNKNOWN
  6. UNSPECIFIED INGREDIENT [Concomitant]
     Active Substance: UNSPECIFIED INGREDIENT
     Dosage: DOSE UNKNOWN
     Route: 065
  7. Antiallergic agents [Concomitant]
     Indication: Asthma
     Dosage: DOSE UNKNOWN
  8. Antiallergic agents [Concomitant]
     Dosage: DOSE UNKNOWN
     Route: 065
  9. UNSPECIFIED INGREDIENT [Concomitant]
     Active Substance: UNSPECIFIED INGREDIENT
     Indication: Hypertension
     Dosage: DOSE UNKNOWN
  10. UNSPECIFIED INGREDIENT [Concomitant]
     Active Substance: UNSPECIFIED INGREDIENT
     Dosage: DOSE UNKNOWN
  11. UNSPECIFIED INGREDIENT [Concomitant]
     Active Substance: UNSPECIFIED INGREDIENT
     Dosage: DOSE UNKNOWN
  12. UNSPECIFIED INGREDIENT [Concomitant]
     Active Substance: UNSPECIFIED INGREDIENT
     Dosage: DOSE UNKNOWN
  13. OTHER AGENTS AFFECTING RESPIRATORY ORGANS [Concomitant]
     Indication: Asthma
     Dosage: DOSE UNKNOWN
     Route: 065
  14. OTHER AGENTS AFFECTING RESPIRATORY ORGANS [Concomitant]
     Dosage: DOSE UNKNOWN
  15. OTHER AGENTS AFFECTING RESPIRATORY ORGANS [Concomitant]
     Dosage: DOSE UNKNOWN
     Route: 065
  16. OTHER AGENTS AFFECTING RESPIRATORY ORGANS [Concomitant]
     Dosage: DOSE UNKNOWN
  17. OTHER ANTIALLERGIC AGENTS [Concomitant]
     Indication: Asthma
     Dosage: DOSE UNKNOWN
     Route: 065
  18. OTHER ANTIALLERGIC AGENTS [Concomitant]
     Dosage: DOSE UNKNOWN
  19. OTHER ANTIALLERGIC AGENTS [Concomitant]
     Dosage: DOSE UNKNOWN
     Route: 065
  20. OTHER ANTIALLERGIC AGENTS [Concomitant]
     Dosage: DOSE UNKNOWN

REACTIONS (7)
  - Abdominal pain upper [Recovering/Resolving]
  - Oropharyngeal pain [Not Recovered/Not Resolved]
  - Loss of consciousness [Recovered/Resolved]
  - Chest pain [Unknown]
  - Arrhythmia [Not Recovered/Not Resolved]
  - Visual acuity reduced [Unknown]
  - Gastrooesophageal reflux disease [Unknown]
